FAERS Safety Report 5528013-7 (Version None)
Quarter: 2007Q4

REPORT INFORMATION
  Report Type: 
  Country: None (occurrence: None)
  Receive Date: 20071123
  Receipt Date: 20071109
  Transmission Date: 20080405
  Serious: Yes (Death, Life-Threatening, Hospitalization)
  Sender: FDA-Public Use
  Company Number: CLOF-10738

PATIENT
  Age: 14 Year
  Sex: Female
  Weight: 57 kg

DRUGS (49)
  1. CLOFARABINE. MFR: GENZYME [Suspect]
     Indication: ACUTE LYMPHOCYTIC LEUKAEMIA
     Dosage: 63 MG QD IV
     Route: 042
     Dates: start: 20071024, end: 20071028
  2. ETOPOSIDE [Suspect]
     Indication: ACUTE LYMPHOCYTIC LEUKAEMIA
     Dosage: 155 MG QD IV
     Route: 042
     Dates: start: 20071024, end: 20071028
  3. CYCLOPHOSPHAMIDE [Suspect]
     Indication: ACUTE LYMPHOCYTIC LEUKAEMIA
     Dosage: 685 MG QD IV
     Route: 042
     Dates: start: 20071024, end: 20071028
  4. ACETAMINOPHEN [Concomitant]
  5. ACYCLOVIR [Concomitant]
  6. ALLOPURINOL [Concomitant]
  7. ALUMINUM HYDROXIDE GEL [Concomitant]
  8. BISACODYL [Concomitant]
  9. DIPHENHYDRAMINE [Concomitant]
  10. FLUCONAZOLE [Concomitant]
  11. HYDROCORTISONE [Concomitant]
  12. HYDROMORPHONE HCL [Concomitant]
  13. HYDROXYZINE [Concomitant]
  14. FUROSEMIDE [Concomitant]
  15. LORAZEPAM [Concomitant]
  16. MAGNESIUM AMINO ACIDS CHELATE [Concomitant]
  17. MAGNESIUM OXIDE [Concomitant]
  18. MAGNESIUM SULFATE [Concomitant]
  19. MIRTAZAPINE [Concomitant]
  20. ONDANSETRON [Concomitant]
  21. POTASSIUM CHLORIDE [Concomitant]
  22. RANITIDINE HCL [Concomitant]
  23. SODIUM BICARBONATE [Concomitant]
  24. SUCRALFATE [Concomitant]
  25. BACTRIM. MFR: HOFFMAN-LA ROCHE, INC. [Concomitant]
  26. URSODIOL [Concomitant]
  27. VANCOMYCIN [Concomitant]
  28. MICAFUNGIN [Concomitant]
  29. ZOSYN. MFR: LEDERLE LABORATORIES [Concomitant]
  30. PHYTONADIONE. MFR: MARUISHI-KANEBO [Concomitant]
  31. NEUPOGEN [Concomitant]
  32. PANTOPRAZOLE SODIUM [Concomitant]
  33. ALBUMIN HUMAN 25% [Concomitant]
  34. GRANISETRON [Concomitant]
  35. SODIUM PHOSPHATES [Concomitant]
  36. ACTIVASE [Concomitant]
  37. AMIKACIN [Concomitant]
  38. AMBISOME. MFR: SWEDISH ORPHAN [Concomitant]
  39. CALCIUM CHLORIDE [Concomitant]
  40. CEFEPIME [Concomitant]
  41. FAT EMULSION (INTRAVENOUS) [Concomitant]
  42. MEROPENEM [Concomitant]
  43. METRONIDAZOLE [Concomitant]
  44. MIDAZOLAM HCL [Concomitant]
  45. OLANZAPINE [Concomitant]
  46. DEFIBROTIDE [Concomitant]
  47. TPN [Concomitant]
  48. DOPAMINE HCL [Concomitant]
  49. EPINEPHRINE [Concomitant]

REACTIONS (46)
  - ABDOMINAL DISCOMFORT [None]
  - ABDOMINAL PAIN [None]
  - ACUTE GRAFT VERSUS HOST DISEASE IN INTESTINE [None]
  - ALOPECIA [None]
  - ASCITES [None]
  - BACK PAIN [None]
  - BLOOD ALBUMIN DECREASED [None]
  - BLOOD PHOSPHORUS DECREASED [None]
  - BLOOD PHOSPHORUS INCREASED [None]
  - BONE MARROW TRANSPLANT [None]
  - BONE PAIN [None]
  - BREATH SOUNDS ABNORMAL [None]
  - C-REACTIVE PROTEIN INCREASED [None]
  - CAECITIS [None]
  - CANDIDIASIS [None]
  - CATHETER SITE PAIN [None]
  - CORYNEBACTERIUM INFECTION [None]
  - CULTURE URINE POSITIVE [None]
  - FEBRILE NEUTROPENIA [None]
  - FLATULENCE [None]
  - HAEMATOCRIT DECREASED [None]
  - HAEMOGLOBIN DECREASED [None]
  - HEPATOMEGALY [None]
  - HYPERBILIRUBINAEMIA [None]
  - HYPERGLYCAEMIA [None]
  - HYPOKALAEMIA [None]
  - HYPOTENSION [None]
  - LUNG CONSOLIDATION [None]
  - MARROW HYPERPLASIA [None]
  - MULTI-ORGAN FAILURE [None]
  - NAUSEA [None]
  - NEUTROPENIA [None]
  - OESOPHAGEAL DILATATION [None]
  - OSTEOPENIA [None]
  - OXYGEN SATURATION DECREASED [None]
  - PANCREATITIS [None]
  - PERICARDIAL EFFUSION [None]
  - PITTING OEDEMA [None]
  - PLEURAL EFFUSION [None]
  - PRURITUS [None]
  - RENAL FAILURE ACUTE [None]
  - STREPTOCOCCAL INFECTION [None]
  - TACHYCARDIA [None]
  - THROMBOCYTOPENIA [None]
  - VENOOCCLUSIVE LIVER DISEASE [None]
  - VOMITING [None]
